FAERS Safety Report 9013820 (Version 2)
Quarter: 2013Q2

REPORT INFORMATION
  Report Type: Spontaneous
  Country: US (occurrence: US)
  Receive Date: 20130115
  Receipt Date: 20130619
  Transmission Date: 20140414
  Serious: Yes (Hospitalization)
  Sender: FDA-Public Use
  Company Number: US-BAYER-2013-003323

PATIENT
  Age: 36 Year
  Sex: Female

DRUGS (4)
  1. YASMIN [Suspect]
  2. VALTREX [Concomitant]
     Dosage: 1 G, UNK
  3. BACTROBAN [Concomitant]
     Dosage: 2 %, UNK
  4. LASIX [Concomitant]
     Dosage: 20 MG, DAILY
     Dates: start: 200706

REACTIONS (2)
  - Deep vein thrombosis [None]
  - Pulmonary embolism [None]
